FAERS Safety Report 15863526 (Version 1)
Quarter: 2019Q1

REPORT INFORMATION
  Report Type: Spontaneous
  Country: GB (occurrence: GB)
  Receive Date: 20190124
  Receipt Date: 20190124
  Transmission Date: 20190417
  Serious: Yes (Other)
  Sender: FDA-Public Use
  Company Number: GB-BAYER-2019-013236

PATIENT
  Age: 31 Year
  Sex: Female
  Weight: 52.16 kg

DRUGS (1)
  1. JAYDESS [Suspect]
     Active Substance: LEVONORGESTREL
     Indication: CONTRACEPTION
     Dosage: 13.5 MG, UNK
     Route: 067
     Dates: start: 20180221, end: 20181129

REACTIONS (5)
  - Abdominal pain lower [Recovered/Resolved]
  - Anal incontinence [Recovered/Resolved]
  - Iron deficiency [Recovered/Resolved]
  - Abdominal distension [Recovering/Resolving]
  - Metrorrhagia [Recovered/Resolved]

NARRATIVE: CASE EVENT DATE: 20180221
